FAERS Safety Report 22786856 (Version 5)
Quarter: 2023Q4

REPORT INFORMATION
  Report Type: Spontaneous
  Country: CA (occurrence: CA)
  Receive Date: 20230804
  Receipt Date: 20231004
  Transmission Date: 20240110
  Serious: Yes (Other)
  Sender: FDA-Public Use
  Company Number: CA-CELLTRION INC.-2023CA007188

PATIENT

DRUGS (7)
  1. INFLECTRA [Suspect]
     Active Substance: INFLIXIMAB-DYYB
     Indication: Behcet^s syndrome
     Dosage: 400 MG, EVERY 8 WEEKS
     Route: 042
     Dates: start: 20230511
  2. INFLECTRA [Suspect]
     Active Substance: INFLIXIMAB-DYYB
     Indication: Uveitis
     Dosage: 400 MG, EVERY 4 WEEKS
     Route: 042
     Dates: start: 20230725
  3. INFLECTRA [Suspect]
     Active Substance: INFLIXIMAB-DYYB
     Indication: Retinal vasculitis
     Dosage: 400 MG, EVERY 4 WEEKS
     Route: 042
     Dates: start: 20230921
  4. GRAVOL [Concomitant]
     Active Substance: DIMENHYDRINATE
     Indication: Premedication
     Dosage: 50 MG
  5. GRAVOL [Concomitant]
     Active Substance: DIMENHYDRINATE
     Dosage: INCREASED GRAVOL DOSE AS PRE-MEDICATION
     Dates: start: 20230921, end: 20230921
  6. TYLENOL [Concomitant]
     Active Substance: ACETAMINOPHEN
     Dosage: 1000 MG
  7. METHOTREXATE [Concomitant]
     Active Substance: METHOTREXATE
     Dosage: 10 MG, WEEKLY
     Route: 058

REACTIONS (7)
  - Endometriosis [Unknown]
  - Urinary tract infection [Unknown]
  - Nausea [Recovered/Resolved]
  - Stress [Unknown]
  - Fatigue [Unknown]
  - Back pain [Unknown]
  - Off label use [Unknown]

NARRATIVE: CASE EVENT DATE: 20230101
